FAERS Safety Report 20009371 (Version 2)
Quarter: 2021Q4

REPORT INFORMATION
  Report Type: Spontaneous
  Country: DE (occurrence: DE)
  Receive Date: 20211028
  Receipt Date: 20211126
  Transmission Date: 20220303
  Serious: Yes (Life-Threatening, Hospitalization, Other)
  Sender: FDA-Public Use
  Company Number: DE-UCBSA-2021049640

PATIENT
  Age: 8 Year
  Sex: Female
  Weight: 15 kg

DRUGS (4)
  1. VIMPAT [Suspect]
     Active Substance: LACOSAMIDE
     Indication: Seizure
     Dosage: 50MG AM AND 100MG PM
     Route: 048
     Dates: start: 202104
  2. ENEMASTAR [Concomitant]
     Indication: Product used for unknown indication
  3. SULTHIAME [Concomitant]
     Active Substance: SULTHIAME
     Indication: Seizure
     Dosage: 50AM AND 100PM
     Route: 048
     Dates: start: 2018
  4. GABAPENTIN [Concomitant]
     Active Substance: GABAPENTIN
     Indication: Insomnia
     Dosage: 100 MILLIGRAM, ONCE DAILY (QD)
     Route: 048
     Dates: start: 2019

REACTIONS (5)
  - Impaired gastric emptying [Not Recovered/Not Resolved]
  - Hip surgery [Unknown]
  - Febrile infection [Unknown]
  - Weight decreased [Recovering/Resolving]
  - Product use issue [Unknown]
